FAERS Safety Report 6734228-2 (Version None)
Quarter: 2010Q2

REPORT INFORMATION
  Report Type: 
  Country: None (occurrence: None)
  Receive Date: 20100520
  Receipt Date: 20100507
  Transmission Date: 20101027
  Serious: Yes (Other)
  Sender: FDA-Public Use
  Company Number: PHHY2010JP16610

PATIENT
  Age: 52 Year
  Sex: Male

DRUGS (8)
  1. SANDOSTATIN [Suspect]
     Indication: GASTROINTESTINAL OBSTRUCTION
     Dosage: 300 UG DAILY
     Route: 058
     Dates: start: 20100218
  2. ELEMENMIC [Concomitant]
     Dosage: UNK
     Dates: start: 20100301, end: 20100331
  3. LACTEC [Concomitant]
     Dosage: UNK
     Dates: start: 20100301, end: 20100331
  4. DEXART [Concomitant]
     Dosage: UNK
     Dates: start: 20100301, end: 20100331
  5. DUROTEP [Concomitant]
     Dosage: UNK
     Dates: start: 20100219, end: 20100331
  6. ANPEC [Concomitant]
     Dosage: UNK
     Dates: start: 20100219, end: 20100331
  7. ROHYPNOL [Concomitant]
     Dosage: UNK
     Dates: start: 20100219, end: 20100331
  8. FULCALIQ [Concomitant]
     Dosage: UNK
     Dates: start: 20100301, end: 20100331

REACTIONS (15)
  - ASCITES [None]
  - ASPARTATE AMINOTRANSFERASE INCREASED [None]
  - BLOOD ALBUMIN DECREASED [None]
  - BLOOD LACTATE DEHYDROGENASE INCREASED [None]
  - DYSURIA [None]
  - HAEMATOCRIT DECREASED [None]
  - HAEMOGLOBIN DECREASED [None]
  - NEUTROPHIL COUNT INCREASED [None]
  - PLATELET COUNT INCREASED [None]
  - PROTEIN TOTAL DECREASED [None]
  - RED BLOOD CELL COUNT DECREASED [None]
  - RENAL IMPAIRMENT [None]
  - SWELLING [None]
  - URINARY RETENTION [None]
  - WHITE BLOOD CELL COUNT INCREASED [None]
